FAERS Safety Report 14959968 (Version 2)
Quarter: 2018Q4

REPORT INFORMATION
  Report Type: Report from Study
  Country: US (occurrence: US)
  Receive Date: 20180531
  Receipt Date: 20181227
  Transmission Date: 20190204
  Serious: Yes (Hospitalization, Other)
  Sender: FDA-Public Use
  Company Number: US-GILEAD-2018-0340264

PATIENT
  Age: 48 Year
  Sex: Female
  Weight: 54.42 kg

DRUGS (22)
  1. DOXEPIN [Concomitant]
     Active Substance: DOXEPIN
  2. FLUOCINONIDE. [Concomitant]
     Active Substance: FLUOCINONIDE
  3. CLOBETASOL [Concomitant]
     Active Substance: CLOBETASOL
  4. LISINOPRIL. [Concomitant]
     Active Substance: LISINOPRIL
  5. LACTULOSE. [Concomitant]
     Active Substance: LACTULOSE
  6. NEOSPORIN [Concomitant]
     Active Substance: BACITRACIN ZINC\NEOMYCIN SULFATE\POLYMYXIN B SULFATE
  7. NICOTINE POLACRILEX [Concomitant]
     Active Substance: NICOTINE
  8. SOFOSBUVIR W/VELPATASVIR [Suspect]
     Active Substance: SOFOSBUVIR\VELPATASVIR
     Indication: HEPATITIS C
     Dosage: 1 DF, QD
     Route: 048
     Dates: start: 20170721, end: 20171017
  9. METFORMIN [Concomitant]
     Active Substance: METFORMIN HYDROCHLORIDE
  10. GLIPIZIDE. [Concomitant]
     Active Substance: GLIPIZIDE
  11. ACETAMINOPHEN. [Concomitant]
     Active Substance: ACETAMINOPHEN
  12. TRIAMCINOLONE [Concomitant]
     Active Substance: TRIAMCINOLONE
  13. DOCUSATE SODIUM. [Concomitant]
     Active Substance: DOCUSATE SODIUM
  14. FERROUS SULFATE. [Concomitant]
     Active Substance: FERROUS SULFATE
  15. BACLOFEN. [Concomitant]
     Active Substance: BACLOFEN
  16. DESONIDE. [Concomitant]
     Active Substance: DESONIDE
  17. KETOCONAZOLE. [Concomitant]
     Active Substance: KETOCONAZOLE
  18. HYDROXYZINE [Concomitant]
     Active Substance: HYDROXYZINE HYDROCHLORIDE
  19. POLYETHYLENE GLYCOL [Concomitant]
     Active Substance: POLYETHYLENE GLYCOLS
  20. LIDOCAINE. [Concomitant]
     Active Substance: LIDOCAINE
  21. DICLOFENAC [Concomitant]
     Active Substance: DICLOFENAC
  22. VANICREAM [Concomitant]
     Active Substance: TITANIUM DIOXIDE\ZINC OXIDE

REACTIONS (8)
  - Catheter site pain [Unknown]
  - Acute kidney injury [Unknown]
  - Hyperkalaemia [Recovering/Resolving]
  - Product dose omission [Unknown]
  - Sepsis [Unknown]
  - Abdominal pain [Unknown]
  - Metabolic acidosis [Unknown]
  - Soft tissue infection [Unknown]

NARRATIVE: CASE EVENT DATE: 20170826
